FAERS Safety Report 17731668 (Version 1)
Quarter: 2020Q2

REPORT INFORMATION
  Report Type: Spontaneous
  Country: US (occurrence: US)
  Receive Date: 20200501
  Receipt Date: 20200501
  Transmission Date: 20200714
  Serious: Yes (Other)
  Sender: FDA-Public Use
  Company Number: US-GILEAD-2020-0462026

PATIENT
  Age: 80 Year
  Sex: Female

DRUGS (1)
  1. ZYDELIG [Suspect]
     Active Substance: IDELALISIB
     Indication: B-CELL LYMPHOMA
     Dosage: UNK
     Route: 065
     Dates: end: 202004

REACTIONS (16)
  - Visual impairment [Unknown]
  - Nasal congestion [Not Recovered/Not Resolved]
  - Asthenia [Not Recovered/Not Resolved]
  - Decreased appetite [Not Recovered/Not Resolved]
  - Epistaxis [Unknown]
  - Diarrhoea [Not Recovered/Not Resolved]
  - Viral infection [Not Recovered/Not Resolved]
  - Cataract [Unknown]
  - Oropharyngeal pain [Not Recovered/Not Resolved]
  - Pharyngeal erythema [Not Recovered/Not Resolved]
  - Gingival pain [Not Recovered/Not Resolved]
  - Chills [Not Recovered/Not Resolved]
  - Feeling abnormal [Unknown]
  - Dry mouth [Not Recovered/Not Resolved]
  - Cough [Unknown]
  - Gastrooesophageal reflux disease [Recovered/Resolved]

NARRATIVE: CASE EVENT DATE: 2020
